FAERS Safety Report 8060593-2 (Version None)
Quarter: 2012Q1

REPORT INFORMATION
  Report Type: 
  Country: None (occurrence: None)
  Receive Date: 20120119
  Receipt Date: 20120119
  Transmission Date: 20120608
  Serious: Yes (Life-Threatening, Disabling, Other)
  Sender: FDA-Public Use
  Company Number: None

PATIENT
  Sex: Male
  Weight: 70.3075 kg

DRUGS (2)
  1. ZYPREXA [Suspect]
     Indication: SCHIZOPHRENIA
     Dosage: 40 MILLIGRAM AT BED ORAL  FROM AGE FOUR TO NOW 2000
     Route: 048
  2. ZYPREXA [Suspect]
     Indication: BIPOLAR I DISORDER
     Dosage: 40 MILLIGRAM AT BED ORAL  FROM AGE FOUR TO NOW 2000
     Route: 048

REACTIONS (1)
  - BLINDNESS [None]
